FAERS Safety Report 23004698 (Version 3)
Quarter: 2024Q1

REPORT INFORMATION
  Report Type: Report from Study
  Country: US (occurrence: US)
  Receive Date: 20230929
  Receipt Date: 20240312
  Transmission Date: 20240409
  Serious: No
  Sender: FDA-Public Use
  Company Number: US-ACADIA PHARMACEUTICALS INC.-ACA-2023-PIM-003905

PATIENT
  Sex: Male

DRUGS (1)
  1. NUPLAZID [Suspect]
     Active Substance: PIMAVANSERIN TARTRATE
     Indication: Parkinson^s disease psychosis
     Dosage: 34 MILLIGRAM, QD
     Route: 048

REACTIONS (7)
  - Product dose omission issue [Unknown]
  - Ill-defined disorder [Unknown]
  - Fatigue [Unknown]
  - Motor dysfunction [Unknown]
  - Catheter placement [Not Recovered/Not Resolved]
  - Hallucination [Recovered/Resolved]
  - Gait disturbance [Unknown]
